FAERS Safety Report 8174396-1 (Version None)
Quarter: 2012Q1

REPORT INFORMATION
  Report Type: 
  Country: None (occurrence: None)
  Receive Date: 20120229
  Receipt Date: 20120221
  Transmission Date: 20120608
  Serious: Yes (Other)
  Sender: FDA-Public Use
  Company Number: US-ELI_LILLY_AND_COMPANY-US201202006561

PATIENT
  Age: 23 Year
  Sex: Male

DRUGS (4)
  1. AXIRON [Suspect]
     Indication: BLOOD TESTOSTERONE DECREASED
     Dosage: UNK, UNKNOWN
     Dates: start: 20120101
  2. XANAX [Concomitant]
     Dosage: UNK, UNKNOWN
  3. ATENOLOL [Concomitant]
     Dosage: UNK, UNKNOWN
  4. CONDYLOX [Concomitant]
     Indication: ANOGENITAL WARTS
     Dosage: UNK, UNKNOWN

REACTIONS (1)
  - SYNCOPE [None]
